FAERS Safety Report 22918079 (Version 5)
Quarter: 2023Q4

REPORT INFORMATION
  Report Type: Other
  Country: US (occurrence: US)
  Receive Date: 20230907
  Receipt Date: 20231123
  Transmission Date: 20240110
  Serious: No
  Sender: FDA-Public Use
  Company Number: US-TRAVERE-2023TVT00227

PATIENT
  Age: 45 Year
  Sex: Male
  Weight: 93.44 kg

DRUGS (6)
  1. FILSPARI [Suspect]
     Active Substance: SPARSENTAN
     Indication: Chronic kidney disease
     Route: 048
     Dates: start: 20230310
  2. FILSPARI [Suspect]
     Active Substance: SPARSENTAN
     Indication: Haematuria
  3. TYLENOL EXTRA STRENGTH [Concomitant]
     Active Substance: ACETAMINOPHEN
  4. MELATONIN [Concomitant]
     Active Substance: MELATONIN
  5. AMLODIPINE BESYLATE [Concomitant]
     Active Substance: AMLODIPINE BESYLATE
  6. MOXATAG [Concomitant]
     Active Substance: AMOXICILLIN

REACTIONS (6)
  - Headache [Not Recovered/Not Resolved]
  - Protein total decreased [Unknown]
  - Tooth disorder [Not Recovered/Not Resolved]
  - Drug ineffective [Unknown]
  - Tooth infection [Unknown]
  - Product use in unapproved indication [Unknown]
